FAERS Safety Report 5623898-8 (Version None)
Quarter: 2008Q1

REPORT INFORMATION
  Report Type: 
  Country: None (occurrence: None)
  Receive Date: 20080207
  Receipt Date: 20080204
  Transmission Date: 20080703
  Serious: Yes (Death, Hospitalization, Other)
  Sender: FDA-Public Use
  Company Number: 2008-00379

PATIENT
  Age: 55 Year
  Sex: Male
  Weight: 74 kg

DRUGS (19)
  1. VELCADE [Suspect]
     Indication: MULTIPLE MYELOMA
     Dosage: 2.20 MG, INTRAVENOUS
     Route: 042
     Dates: start: 20061228, end: 20071102
  2. DEXAMETHASONE TAB [Suspect]
     Indication: MULTIPLE MYELOMA
     Dosage: 20.00 MG, INTRAVENOUS
     Route: 042
     Dates: start: 20070216, end: 20070821
  3. FAMOTIDINE [Suspect]
     Indication: PROPHYLAXIS
     Dosage: 40.00 MG, ORAL
     Route: 048
  4. KOLANTYL (DICYCLOVERINE HYDROCHLORIDE, MAGNESIUM OXIDE, METHYLCALLULOS [Concomitant]
  5. PROMAC (POLAPREZINC) [Concomitant]
  6. ALLOPURINOL [Concomitant]
  7. BACTRIM [Concomitant]
  8. MILMAG (MAGNESIUM HYDROXIDE) [Concomitant]
  9. THALIDOMIDE [Concomitant]
  10. NEUROTROPIN (ORGAN LYSATE, STANDARDIZED) [Concomitant]
  11. METHYCOBAL (MECOBALAMIN) [Concomitant]
  12. TEGRETOL [Concomitant]
  13. EPOETIN ALFA (EPOETIN ALFA) [Concomitant]
  14. CARBENIN (BETAMIPRON, PANIPENEM) [Concomitant]
  15. LORCAM (LORNOXICAM) [Concomitant]
  16. GRAN [Concomitant]
  17. FIRSTCIN (CEFOZOPRAN HYDROCHLORIDE) [Concomitant]
  18. PAZUCROSS (PAZUFLOXACIN) [Concomitant]
  19. VENOGLOBULIN-I [Concomitant]

REACTIONS (5)
  - ANAEMIA [None]
  - DISEASE PROGRESSION [None]
  - PLATELET COUNT DECREASED [None]
  - RENAL FAILURE [None]
  - WHITE BLOOD CELL COUNT DECREASED [None]
